FAERS Safety Report 22100663 (Version 1)
Quarter: 2023Q1

REPORT INFORMATION
  Report Type: Spontaneous
  Country: FR (occurrence: FR)
  Receive Date: 20230316
  Receipt Date: 20230316
  Transmission Date: 20230418
  Serious: Yes (Hospitalization)
  Sender: FDA-Public Use
  Company Number: None

PATIENT
  Age: 18 Year
  Sex: Female
  Weight: 113 kg

DRUGS (14)
  1. TRISENOX [Suspect]
     Active Substance: ARSENIC TRIOXIDE
     Indication: Acute myeloid leukaemia
     Route: 065
     Dates: start: 20230113, end: 20230206
  2. CERNEVIT [Concomitant]
     Active Substance: VITAMINS
     Indication: Product used for unknown indication
     Route: 065
  3. NOMEGESTROL [Concomitant]
     Active Substance: NOMEGESTROL
     Indication: Product used for unknown indication
  4. MODAFINIL [Concomitant]
     Active Substance: MODAFINIL
     Indication: Product used for unknown indication
  5. HUMALOG [Concomitant]
     Active Substance: INSULIN LISPRO
     Indication: Product used for unknown indication
  6. DIAMOX SEQUELS [Concomitant]
     Active Substance: ACETAZOLAMIDE
     Indication: Product used for unknown indication
  7. OXAZEPAM [Concomitant]
     Active Substance: OXAZEPAM
     Indication: Product used for unknown indication
  8. METHYLPREDNISOLONE [Concomitant]
     Active Substance: METHYLPREDNISOLONE
     Indication: Product used for unknown indication
  9. PIPERACILLIN SODIUM\TAZOBACTAM SODIUM [Concomitant]
     Active Substance: PIPERACILLIN SODIUM\TAZOBACTAM SODIUM
     Indication: Product used for unknown indication
  10. HYDREA [Concomitant]
     Active Substance: HYDROXYUREA
     Indication: Product used for unknown indication
  11. POSACONAZOLE [Concomitant]
     Active Substance: POSACONAZOLE
     Indication: Product used for unknown indication
  12. DAPTOMYCIN [Concomitant]
     Active Substance: DAPTOMYCIN
     Indication: Product used for unknown indication
  13. VESANOID [Concomitant]
     Active Substance: TRETINOIN
     Indication: Product used for unknown indication
  14. IRON\MINERALS\POTASSIUM IOD\SODIUM FLUORIDE\SODIUM MOLYBDATE\SODIUM SE [Concomitant]
     Active Substance: IRON\MINERALS\POTASSIUM IOD\SODIUM FLUORIDE\SODIUM MOLYBDATE\SODIUM SELENITE\ZINC
     Indication: Product used for unknown indication

REACTIONS (1)
  - Hepatic cytolysis [Recovering/Resolving]

NARRATIVE: CASE EVENT DATE: 20230206
